FAERS Safety Report 8503448-9 (Version None)
Quarter: 2012Q3

REPORT INFORMATION
  Report Type: 
  Country: None (occurrence: None)
  Receive Date: 20120711
  Receipt Date: 20120703
  Transmission Date: 20120928
  Serious: Yes (Hospitalization)
  Sender: FDA-Public Use
  Company Number: US-GLAXOSMITHKLINE-A0883548A

PATIENT
  Age: 56 Year
  Sex: Male

DRUGS (12)
  1. AVANDIA [Suspect]
     Indication: TYPE 2 DIABETES MELLITUS
     Dosage: 4MG TWICE PER DAY
     Route: 048
     Dates: start: 20020101, end: 20080101
  2. METFORMIN HCL [Concomitant]
  3. AMARYL [Concomitant]
  4. QUETIAPINE FUMARATE [Concomitant]
  5. OMEPRAZOLE [Concomitant]
  6. SERTRALINE HYDROCHLORIDE [Concomitant]
  7. HYDROXYPROPYL METHYLCELLULOSE [Concomitant]
  8. NIACIN [Concomitant]
  9. CYANOCOBALAMIN [Concomitant]
  10. SIMVASTATIN [Concomitant]
  11. LOSARTAN POTASSIUM [Concomitant]
  12. HYDROCHLOROTHIAZIDE [Concomitant]

REACTIONS (4)
  - MOVEMENT DISORDER [None]
  - WHEELCHAIR USER [None]
  - HYPOAESTHESIA [None]
  - CEREBROVASCULAR ACCIDENT [None]
